FAERS Safety Report 19124781 (Version 2)
Quarter: 2021Q2

REPORT INFORMATION
  Report Type: Spontaneous
  Country: AU (occurrence: AU)
  Receive Date: 20210412
  Receipt Date: 20210413
  Transmission Date: 20210717
  Serious: Yes (Other)
  Sender: FDA-Public Use
  Company Number: AU-ROCHE-2803397

PATIENT
  Age: 98 Year
  Sex: Female

DRUGS (3)
  1. CLEXANE [Concomitant]
     Active Substance: ENOXAPARIN SODIUM
     Indication: AXILLARY VEIN THROMBOSIS
  2. HERCEPTIN [Suspect]
     Active Substance: TRASTUZUMAB
     Indication: SKIN CANCER
     Route: 065
     Dates: start: 201310, end: 202101
  3. CAPECITABINE. [Concomitant]
     Active Substance: CAPECITABINE
     Indication: SKIN CANCER
     Route: 048
     Dates: start: 202101

REACTIONS (2)
  - Spinal compression fracture [Unknown]
  - Pulmonary embolism [Unknown]
